FAERS Safety Report 5946078-5 (Version None)
Quarter: 2008Q4

REPORT INFORMATION
  Report Type: 
  Country: None (occurrence: None)
  Receive Date: 20081110
  Receipt Date: 20081028
  Transmission Date: 20090506
  Serious: Yes (Hospitalization)
  Sender: FDA-Public Use
  Company Number: BR-ROCHE-589437

PATIENT
  Age: 14 Year
  Sex: Male

DRUGS (3)
  1. ROACUTAN [Suspect]
     Indication: ACNE
     Dosage: STRENGTH: 10-20 MG.
     Route: 048
     Dates: start: 20071113, end: 20080519
  2. ROACUTAN [Suspect]
     Dosage: STRENGTH: 20 MG.
     Route: 048
     Dates: start: 20080520, end: 20080915
  3. ROACUTAN [Suspect]
     Dosage: STRENGTH: 10 MG.
     Route: 048
     Dates: start: 20080916, end: 20081001

REACTIONS (1)
  - BRONCHITIS [None]
